FAERS Safety Report 4863728-5 (Version None)
Quarter: 2005Q4

REPORT INFORMATION
  Report Type: 
  Country: None (occurrence: None)
  Receive Date: 20051222
  Receipt Date: 20051121
  Transmission Date: 20060501
  Serious: No
  Sender: FDA-Public Use
  Company Number: US-GLAXOSMITHKLINE-A0583318A

PATIENT
  Age: 74 Year
  Sex: Male

DRUGS (3)
  1. FLOVENT [Suspect]
     Indication: ASTHMA
     Route: 055
     Dates: start: 20050901
  2. TUSSINEX [Concomitant]
  3. TEQUIN [Concomitant]

REACTIONS (2)
  - CHEST DISCOMFORT [None]
  - WHEEZING [None]
